FAERS Safety Report 11721332 (Version 2)
Quarter: 2015Q4

REPORT INFORMATION
  Report Type: Spontaneous
  Country: US (occurrence: US)
  Receive Date: 20151111
  Receipt Date: 20151122
  Transmission Date: 20160304
  Serious: Yes (Hospitalization)
  Sender: FDA-Public Use
  Company Number: US-HOSPIRA-3067645

PATIENT
  Age: 75 Year
  Sex: Male
  Weight: 85 kg

DRUGS (7)
  1. AVASTIN [Concomitant]
     Active Substance: BEVACIZUMAB
     Indication: NON-SMALL CELL LUNG CANCER
     Dosage: EVERY 21 DAYS
     Route: 042
     Dates: start: 20150917
  2. TAXOL [Suspect]
     Active Substance: PACLITAXEL
     Indication: NON-SMALL CELL LUNG CANCER
     Route: 042
     Dates: start: 20150917
  3. ZANTAC [Concomitant]
     Active Substance: RANITIDINE HYDROCHLORIDE
     Indication: GASTROOESOPHAGEAL REFLUX DISEASE
     Route: 042
     Dates: start: 20150917, end: 20150917
  4. LATANOPROST. [Concomitant]
     Active Substance: LATANOPROST
     Indication: GLAUCOMA
     Dosage: 0.005%
     Route: 047
     Dates: start: 20150810
  5. LACTULOSE. [Concomitant]
     Active Substance: LACTULOSE
     Indication: CONSTIPATION
     Dosage: QD
     Route: 048
     Dates: start: 20150820
  6. CARBOPLATIN. [Suspect]
     Active Substance: CARBOPLATIN
     Indication: NON-SMALL CELL LUNG CANCER
     Route: 042
     Dates: start: 20150917
  7. BRIMONIDINE [Concomitant]
     Active Substance: BRIMONIDINE TARTRATE
     Indication: GLAUCOMA
     Dosage: QD
     Route: 047
     Dates: start: 20150810

REACTIONS (2)
  - Pneumonia [Recovered/Resolved]
  - Febrile neutropenia [Recovered/Resolved]

NARRATIVE: CASE EVENT DATE: 20151020
